FAERS Safety Report 13663370 (Version 2)
Quarter: 2017Q4

REPORT INFORMATION
  Report Type: Spontaneous
  Country: US (occurrence: US)
  Receive Date: 20170619
  Receipt Date: 20171009
  Transmission Date: 20180320
  Serious: Yes (Other)
  Sender: FDA-Public Use
  Company Number: US-SUN PHARMACEUTICAL INDUSTRIES LTD-2017US-143291

PATIENT
  Age: 70 Year
  Sex: Female

DRUGS (14)
  1. LITHIUM. [Suspect]
     Active Substance: LITHIUM
     Dosage: STARTED ON LITHIUM 300MG PO BID AND TITRATED UP TO 300MG PO BID AND 450MG PO QHS OVER 7-8 DAYS
     Route: 048
     Dates: start: 20161111
  2. RISPERIDONE. [Concomitant]
     Active Substance: RISPERIDONE
     Indication: PRODUCT USED FOR UNKNOWN INDICATION
     Dosage: 3.5 MG, BID
     Route: 065
     Dates: start: 201611
  3. RISPERIDONE. [Concomitant]
     Active Substance: RISPERIDONE
     Dosage: 3 MG, BID
     Route: 065
     Dates: start: 201611
  4. LORAZEPAM. [Concomitant]
     Active Substance: LORAZEPAM
     Indication: PRODUCT USED FOR UNKNOWN INDICATION
     Dosage: 1 MG, BID
     Route: 065
     Dates: start: 201611
  5. AMLODIPINE BESYLATE. [Concomitant]
     Active Substance: AMLODIPINE BESYLATE
     Indication: PRODUCT USED FOR UNKNOWN INDICATION
     Dosage: 5 MG, DAILY
     Route: 065
     Dates: start: 201611
  6. LITHIUM. [Suspect]
     Active Substance: LITHIUM
     Dosage: STARTED ON LITHIUM 300MG PO BID AND TITRATED UP TO 300MG PO BID AND 450MG PO QHS OVER 7-8 DAYS
     Route: 048
     Dates: start: 20161115
  7. GABAPENTIN. [Concomitant]
     Active Substance: GABAPENTIN
     Indication: PRODUCT USED FOR UNKNOWN INDICATION
     Dosage: 300 MG, TID
     Route: 065
     Dates: start: 201611
  8. AMANTADINE. [Concomitant]
     Active Substance: AMANTADINE HYDROCHLORIDE
     Indication: PRODUCT USED FOR UNKNOWN INDICATION
     Dosage: 100 MG, BID
     Route: 065
     Dates: start: 201611
  9. LITHIUM. [Suspect]
     Active Substance: LITHIUM
     Indication: PRODUCT USED FOR UNKNOWN INDICATION
     Dosage: STARTED ON LITHIUM 300MG PO BID AND TITRATED UP TO 300MG PO BID AND 450MG PO QHS OVER 7-8 DAYS
     Route: 048
     Dates: start: 20161108
  10. LITHIUM. [Suspect]
     Active Substance: LITHIUM
     Dosage: STARTED ON LITHIUM 300MG PO BID AND TITRATED UP TO 300MG PO BID AND 450MG PO QHS OVER 7-8 DAYS
     Route: 048
     Dates: start: 20161115, end: 20161122
  11. VALPROIC ACID. [Concomitant]
     Active Substance: VALPROIC ACID
     Indication: PRODUCT USED FOR UNKNOWN INDICATION
     Dosage: 250 MG, QD
     Route: 065
     Dates: start: 201611
  12. LEVOTHYROXINE SODIUM. [Concomitant]
     Active Substance: LEVOTHYROXINE SODIUM
     Indication: PRODUCT USED FOR UNKNOWN INDICATION
     Dosage: 25 ?G, DAILY
     Route: 065
     Dates: start: 201611
  13. ASPIRIN. [Concomitant]
     Active Substance: ASPIRIN
     Indication: PRODUCT USED FOR UNKNOWN INDICATION
     Dosage: 81 MG, DAILY
     Route: 065
     Dates: start: 201611
  14. DIVALPROEX SODIUM. [Concomitant]
     Active Substance: DIVALPROEX SODIUM
     Indication: PRODUCT USED FOR UNKNOWN INDICATION
     Dosage: 500 MG, BID
     Route: 065
     Dates: start: 201611

REACTIONS (3)
  - Aphasia [Recovered/Resolved]
  - Toxicity to various agents [Recovered/Resolved]
  - Hypernatraemia [Recovered/Resolved]

NARRATIVE: CASE EVENT DATE: 201611
